FAERS Safety Report 21967322 (Version 1)
Quarter: 2023Q1

REPORT INFORMATION
  Report Type: Spontaneous
  Country: US (occurrence: None)
  Receive Date: 20230206
  Receipt Date: 20230206
  Transmission Date: 20230418
  Serious: Yes (Other)
  Sender: FDA-Public Use
  Company Number: None

PATIENT
  Age: 22 Year
  Sex: Female
  Weight: 52.65 kg

DRUGS (19)
  1. METRONIDAZOLE [Suspect]
     Active Substance: METRONIDAZOLE
     Indication: Bacterial vaginosis
     Dates: start: 20230202, end: 20230206
  2. SINGULAIR [Concomitant]
     Active Substance: MONTELUKAST SODIUM
  3. CETIRIZINE HYDROCHLORIDE [Concomitant]
     Active Substance: CETIRIZINE HYDROCHLORIDE
  4. XELJANZ [Concomitant]
     Active Substance: TOFACITINIB CITRATE
  5. AMITRIPTYLINE [Concomitant]
  6. GABAPENTIN [Concomitant]
     Active Substance: GABAPENTIN
  7. XULANE [Concomitant]
     Active Substance: ETHINYL ESTRADIOL\NORELGESTROMIN
  8. Atenlol [Concomitant]
  9. FLUOXETINE [Concomitant]
  10. METHOCARBAMOL [Concomitant]
     Active Substance: METHOCARBAMOL
  11. NURTEC ODT [Concomitant]
     Active Substance: RIMEGEPANT SULFATE
  12. Ovar redihaler [Concomitant]
  13. CYANOCOBALAMIN [Concomitant]
  14. BUDESONIDE [Concomitant]
  15. AJOVY [Concomitant]
     Active Substance: FREMANEZUMAB-VFRM
  16. KETOROLAC [Concomitant]
     Active Substance: KETOROLAC TROMETHAMINE
  17. VITAMIN D3 [Concomitant]
     Active Substance: CHOLECALCIFEROL
  18. ARTIFICIAL TEARS NOS [Concomitant]
     Active Substance: GLYCERIN\HYPROMELLOSE 2910 (15 MPA.S)\PETROLATUM OR POLYVINYL ALCOHOL\POLYETHYLENE GLYCOL 400 OR MIN
  19. IRON [Concomitant]
     Active Substance: IRON

REACTIONS (6)
  - Hypersensitivity [None]
  - Chest discomfort [None]
  - Abdominal pain upper [None]
  - Perineal disorder [None]
  - Vulval disorder [None]
  - Swelling [None]

NARRATIVE: CASE EVENT DATE: 20230203
